FAERS Safety Report 23466815 (Version 1)
Quarter: 2024Q1

REPORT INFORMATION
  Report Type: Report from Study
  Country: US (occurrence: US)
  Receive Date: 20240201
  Receipt Date: 20240201
  Transmission Date: 20240409
  Serious: Yes (Hospitalization)
  Sender: FDA-Public Use
  Company Number: US-PFIZER INC-202300236183

PATIENT
  Age: 63 Year
  Sex: Male
  Weight: 95.238 kg

DRUGS (8)
  1. VYNDAMAX [Suspect]
     Active Substance: TAFAMIDIS
     Indication: Acquired ATTR amyloidosis
     Dosage: IN THE MORNING
     Route: 048
     Dates: start: 202301
  2. ELIQUIS [Concomitant]
     Active Substance: APIXABAN
     Dosage: 5 MG
     Dates: start: 202207
  3. ATORVASTATIN [Concomitant]
     Active Substance: ATORVASTATIN
     Dosage: 80 MG
     Dates: start: 202309
  4. FUROSEMIDE [Concomitant]
     Active Substance: FUROSEMIDE
     Dosage: 20 MG
     Dates: start: 202207
  5. DOFETILIDE [Concomitant]
     Active Substance: DOFETILIDE
     Dosage: 500 MG
     Dates: start: 202311
  6. METOPROLOL [Concomitant]
     Active Substance: METOPROLOL
     Dosage: 25 MG
     Dates: start: 202308
  7. AMLODIPINE [Concomitant]
     Active Substance: AMLODIPINE BESYLATE
     Dosage: 5 MG
     Dates: start: 202308
  8. METAMUCIL CALCIUM [Concomitant]
     Dosage: UNK

REACTIONS (5)
  - Gait disturbance [Unknown]
  - Atrial flutter [Recovered/Resolved]
  - Disease recurrence [Recovered/Resolved]
  - Sinus rhythm [Recovered/Resolved]
  - Therapeutic response unexpected [Unknown]

NARRATIVE: CASE EVENT DATE: 20231101
